FAERS Safety Report 5520119-1 (Version None)
Quarter: 2007Q4

REPORT INFORMATION
  Report Type: 
  Country: None (occurrence: None)
  Receive Date: 20071116
  Receipt Date: 20071106
  Transmission Date: 20080405
  Serious: Yes (Death, Hospitalization)
  Sender: FDA-Public Use
  Company Number: US-SHR-US-2007-022882

PATIENT
  Age: 64 Year
  Sex: Male
  Weight: 122 kg

DRUGS (12)
  1. CAMPATH [Suspect]
     Dosage: 3/10/30 MG TIWX6 WEEKS
     Route: 058
     Dates: start: 20051010, end: 20051122
  2. FLUDARA [Suspect]
     Dosage: 25MG/M2 X6 COURSES
     Route: 042
     Dates: start: 20050101, end: 20050601
  3. RITUXAN [Suspect]
     Dosage: 6 COURSES
     Route: 042
     Dates: start: 20050101, end: 20050601
  4. BENADRYL ^ACHE^ [Concomitant]
     Indication: PREMEDICATION
  5. ACETAMINOPHEN [Concomitant]
     Indication: PREMEDICATION
  6. COTRIM [Concomitant]
     Indication: INFECTION PROPHYLAXIS
     Dates: start: 20051001, end: 20060501
  7. ACYCLOVIR [Concomitant]
     Indication: INFECTION PROPHYLAXIS
     Dates: start: 20051001, end: 20060501
  8. TRICOR [Concomitant]
  9. CYCLOBENZAPRINE HCL [Concomitant]
  10. ALBUTEROL [Concomitant]
  11. TYLENOL [Concomitant]
  12. VICODIN [Concomitant]

REACTIONS (5)
  - BRAIN HERNIATION [None]
  - CONVULSION [None]
  - HYPERTENSION [None]
  - MENINGITIS VIRAL [None]
  - SOMNOLENCE [None]
